FAERS Safety Report 13225717 (Version 1)
Quarter: 2017Q1

REPORT INFORMATION
  Report Type: Spontaneous
  Country: DE (occurrence: DE)
  Receive Date: 20170213
  Receipt Date: 20170213
  Transmission Date: 20170428
  Serious: Yes (Other)
  Sender: FDA-Public Use
  Company Number: DE-GLAXOSMITHKLINE-DE2016GSK157285

PATIENT
  Age: 18 Year
  Sex: Female

DRUGS (2)
  1. NOVALGIN [Suspect]
     Active Substance: METAMIZOLE SODIUM
     Indication: PRODUCT USED FOR UNKNOWN INDICATION
     Dosage: UNK
  2. VIANI [Suspect]
     Active Substance: FLUTICASONE PROPIONATE\SALMETEROL XINAFOATE
     Indication: PRODUCT USED FOR UNKNOWN INDICATION
     Dosage: UNK

REACTIONS (7)
  - Hypothalamo-pituitary disorder [Not Recovered/Not Resolved]
  - Gallbladder operation [Unknown]
  - Heart rate increased [Not Recovered/Not Resolved]
  - Dizziness [Unknown]
  - General physical health deterioration [Recovered/Resolved]
  - Myalgia [Unknown]
  - Cortisol deficiency [Not Recovered/Not Resolved]
